FAERS Safety Report 6329603-4 (Version None)
Quarter: 2009Q3

REPORT INFORMATION
  Report Type: 
  Country: None (occurrence: None)
  Receive Date: 20090826
  Receipt Date: 20090812
  Transmission Date: 20100115
  Serious: Yes (Other)
  Sender: FDA-Public Use
  Company Number: US-MYLANLABS-2009S1014341

PATIENT
  Age: 1 Hour
  Sex: Female

DRUGS (4)
  1. ONDANSETRON [Suspect]
     Indication: VOMITING
     Route: 064
  2. CITALOPRAM [Suspect]
     Indication: DEPRESSION
     Route: 064
  3. URSODIOL [Suspect]
     Route: 064
  4. ZANTAC [Suspect]
     Indication: GASTROOESOPHAGEAL REFLUX DISEASE
     Route: 064

REACTIONS (2)
  - DRUG EXPOSURE DURING PREGNANCY [None]
  - EXTRAPYRAMIDAL DISORDER [None]
